FAERS Safety Report 19082809 (Version 1)
Quarter: 2021Q2

REPORT INFORMATION
  Report Type: Spontaneous
  Country: US (occurrence: US)
  Receive Date: 20210401
  Receipt Date: 20210401
  Transmission Date: 20210717
  Serious: No
  Sender: FDA-Public Use
  Company Number: None

PATIENT
  Age: 70 Year
  Sex: Female
  Weight: 65.25 kg

DRUGS (13)
  1. BETHANECHOL CHLORIDE. [Concomitant]
     Active Substance: BETHANECHOL CHLORIDE
  2. MECLIZINE HCL [Concomitant]
     Active Substance: MECLIZINE HYDROCHLORIDE
  3. HYDROXYZINE PAMOATE. [Concomitant]
     Active Substance: HYDROXYZINE PAMOATE
  4. MELATONIN [Concomitant]
     Active Substance: MELATONIN
  5. METHAZOLAMIDE. [Concomitant]
     Active Substance: METHAZOLAMIDE
  6. ZOFRAN [Concomitant]
     Active Substance: ONDANSETRON HYDROCHLORIDE
  7. GABAPENTIN. [Concomitant]
     Active Substance: GABAPENTIN
  8. JAKAFI [Suspect]
     Active Substance: RUXOLITINIB
     Route: 048
  9. CELEXA [Concomitant]
     Active Substance: CITALOPRAM HYDROBROMIDE
  10. FENTANYL. [Concomitant]
     Active Substance: FENTANYL
  11. CLARITIN [Concomitant]
     Active Substance: LORATADINE
  12. KLONOPIN [Concomitant]
     Active Substance: CLONAZEPAM
  13. PROBIOTIC [Concomitant]
     Active Substance: PROBIOTICS NOS

REACTIONS (3)
  - Splenomegaly [None]
  - Urethral disorder [None]
  - Page kidney [None]
